FAERS Safety Report 4738300-8 (Version None)
Quarter: 2005Q3

REPORT INFORMATION
  Report Type: 
  Country: None (occurrence: None)
  Receive Date: 20050803
  Receipt Date: 20050718
  Transmission Date: 20060218
  Serious: No
  Sender: FDA-Public Use
  Company Number: 31687

PATIENT
  Age: 48 Year
  Sex: Female

DRUGS (6)
  1. VIGAMOX [Suspect]
     Indication: POSTOPERATIVE CARE
     Dosage: 1 GTT Q4HR
     Route: 047
     Dates: start: 20050531, end: 20050608
  2. VIGAMOX [Suspect]
     Indication: POSTOPERATIVE CARE
     Dosage: 1 GTT Q4HR
     Route: 047
  3. DEXAMETHASONE [Concomitant]
  4. FLORATE [Concomitant]
  5. KETOROLAC TROMETHAMINE [Concomitant]
  6. CHONDROITIN SULFATE [Concomitant]

REACTIONS (6)
  - CORNEAL DISORDER [None]
  - CORNEAL OEDEMA [None]
  - EYE INFLAMMATION [None]
  - EYE IRRITATION [None]
  - EYE OEDEMA [None]
  - VISUAL ACUITY REDUCED [None]
